FAERS Safety Report 7516028-9 (Version None)
Quarter: 2011Q2

REPORT INFORMATION
  Report Type: 
  Country: None (occurrence: None)
  Receive Date: 20110601
  Receipt Date: 20110517
  Transmission Date: 20111010
  Serious: Yes (Other)
  Sender: FDA-Public Use
  Company Number: A0929710A

PATIENT
  Age: 41 Year
  Sex: Female
  Weight: 65.9 kg

DRUGS (3)
  1. NICODERM [Suspect]
     Indication: SMOKING CESSATION THERAPY
     Dosage: 14MG PER DAY
     Route: 062
     Dates: start: 20110517
  2. MULTI-VITAMIN [Concomitant]
  3. LEVOTHYROXINE SODIUM [Concomitant]
     Indication: THYROID DISORDER

REACTIONS (6)
  - NERVOUSNESS [None]
  - SOMNOLENCE [None]
  - ASTHENIA [None]
  - PARALYSIS [None]
  - FEELING JITTERY [None]
  - FEELING ABNORMAL [None]
